FAERS Safety Report 17236193 (Version 3)
Quarter: 2020Q1

REPORT INFORMATION
  Report Type: Report from Study
  Country: CA (occurrence: CA)
  Receive Date: 20200106
  Receipt Date: 20200113
  Transmission Date: 20200409
  Serious: Yes (Hospitalization, Other)
  Sender: FDA-Public Use
  Company Number: CA-AMGEN-CANSL2019216986

PATIENT
  Age: 64 Year
  Sex: Female

DRUGS (1)
  1. MVASI [Suspect]
     Active Substance: BEVACIZUMAB-AWWB
     Indication: GLIOBLASTOMA MULTIFORME
     Dosage: 315 MILLIGRAM, Q3WK
     Route: 065

REACTIONS (3)
  - Fatigue [Not Recovered/Not Resolved]
  - Glioblastoma multiforme [Not Recovered/Not Resolved]
  - Pyrexia [Unknown]
